FAERS Safety Report 14657209 (Version 1)
Quarter: 2018Q1

REPORT INFORMATION
  Report Type: Spontaneous
  Country: JP (occurrence: JP)
  Receive Date: 20180319
  Receipt Date: 20180319
  Transmission Date: 20180509
  Serious: Yes (Other)
  Sender: FDA-Public Use
  Company Number: JP-PFIZER INC-2018105205

PATIENT
  Age: 69 Year
  Sex: Male
  Weight: 45 kg

DRUGS (3)
  1. NERIPROCT [Concomitant]
     Active Substance: DIFLUCORTOLONE VALERATE\LIDOCAINE
     Dosage: UNK
  2. LYRICA [Suspect]
     Active Substance: PREGABALIN
     Dosage: UNK
  3. MAGMITT [Concomitant]
     Active Substance: MAGNESIUM OXIDE
     Dosage: UNK

REACTIONS (6)
  - Non-Hodgkin^s lymphoma [Unknown]
  - Rash [Recovered/Resolved]
  - Upper respiratory tract inflammation [Unknown]
  - Neutrophil count decreased [Unknown]
  - Condition aggravated [Recovered/Resolved]
  - Haemorrhoids [Recovered/Resolved]

NARRATIVE: CASE EVENT DATE: 20161216
